FAERS Safety Report 5239315-6 (Version None)
Quarter: 2007Q1

REPORT INFORMATION
  Report Type: 
  Country: None (occurrence: None)
  Receive Date: 20070216
  Receipt Date: 20070205
  Transmission Date: 20070707
  Serious: Yes (Other)
  Sender: FDA-Public Use
  Company Number: US-JNJFOC-20070104042

PATIENT
  Sex: Female
  Weight: 48.08 kg

DRUGS (9)
  1. REMICADE [Suspect]
     Indication: CROHN'S DISEASE
     Route: 042
  2. ACTONEL [Concomitant]
  3. ORTHO EVRA [Concomitant]
  4. CALCIUM [Concomitant]
  5. VITAMIN D [Concomitant]
  6. MAGNESIUM [Concomitant]
  7. IRON [Concomitant]
  8. POTASSIUM ACETATE [Concomitant]
  9. IMURAN [Concomitant]

REACTIONS (9)
  - DIPLOPIA [None]
  - EYE PAIN [None]
  - HEADACHE [None]
  - MUSCLE SPASMS [None]
  - NAUSEA [None]
  - OPTIC NEURITIS [None]
  - PHOTOPHOBIA [None]
  - VERTIGO [None]
  - VISUAL DISTURBANCE [None]
